FAERS Safety Report 7104814-9 (Version None)
Quarter: 2010Q4

REPORT INFORMATION
  Report Type: 
  Country: None (occurrence: None)
  Receive Date: 20101109
  Receipt Date: 20101026
  Transmission Date: 20110411
  Serious: Yes (Hospitalization)
  Sender: FDA-Public Use
  Company Number: DSJ-2010-19403

PATIENT
  Age: 75 Year
  Sex: Female

DRUGS (1)
  1. BENICAR [Suspect]
     Indication: HYPERTENSION
     Dosage: 20 MG (20 MG, 1 IN 1 D), PER ORAL
     Route: 048
     Dates: start: 20050101

REACTIONS (4)
  - FALL [None]
  - JOINT SPRAIN [None]
  - LOWER LIMB FRACTURE [None]
  - TRIGEMINAL NEURALGIA [None]
